FAERS Safety Report 20976045 (Version 1)
Quarter: 2022Q2

REPORT INFORMATION
  Report Type: Spontaneous
  Country: US (occurrence: None)
  Receive Date: 20220617
  Receipt Date: 20220617
  Transmission Date: 20220721
  Serious: Yes (Other)
  Sender: FDA-Public Use
  Company Number: None

PATIENT
  Age: 27 Year
  Sex: Male
  Weight: 72 kg

DRUGS (1)
  1. LEVOFLOXACIN [Suspect]
     Active Substance: LEVOFLOXACIN
     Indication: Urinary tract infection
     Route: 048
     Dates: start: 20220615, end: 20220616

REACTIONS (18)
  - Headache [None]
  - Dizziness [None]
  - Back pain [None]
  - Arthralgia [None]
  - Abdominal pain [None]
  - Chest discomfort [None]
  - Throat tightness [None]
  - Hypoaesthesia [None]
  - Muscular weakness [None]
  - Muscular weakness [None]
  - Paraesthesia [None]
  - Gait disturbance [None]
  - Tendon disorder [None]
  - Dizziness [None]
  - Heart rate increased [None]
  - Diarrhoea [None]
  - Alopecia [None]
  - Musculoskeletal discomfort [None]

NARRATIVE: CASE EVENT DATE: 20220615
